FAERS Safety Report 25044409 (Version 2)
Quarter: 2025Q3

REPORT INFORMATION
  Report Type: Report from Study
  Country: US (occurrence: US)
  Receive Date: 20250306
  Receipt Date: 20250729
  Transmission Date: 20251021
  Serious: No
  Sender: SUNOVION
  Company Number: US-SMPA-2025SPA001570AA

PATIENT

DRUGS (11)
  1. ORGOVYX [Suspect]
     Active Substance: RELUGOLIX
     Indication: Prostate cancer
     Dosage: 360 MG, SINGLE
     Route: 048
     Dates: start: 20250124, end: 20250124
  2. ORGOVYX [Suspect]
     Active Substance: RELUGOLIX
     Dosage: 120 MG, SINGLE
     Route: 048
     Dates: start: 20250125
  3. TADALAFIL [Concomitant]
     Active Substance: TADALAFIL
     Route: 065
  4. VITAMIN C [Concomitant]
     Active Substance: ASCORBIC ACID
     Route: 065
  5. AMLODIPINE BESYLATE [Concomitant]
     Active Substance: AMLODIPINE BESYLATE
     Route: 065
  6. Isorel [Concomitant]
     Route: 065
  7. ARGININE [Concomitant]
     Active Substance: ARGININE
     Route: 065
  8. MILK OF MAGNESIA [Concomitant]
     Active Substance: MAGNESIUM HYDROXIDE
     Route: 065
  9. MINERALS [Concomitant]
     Active Substance: MINERALS
     Route: 065
  10. GAS RELIEF [Concomitant]
     Active Substance: DIMETHICONE
     Route: 065
  11. ALEVE [Concomitant]
     Active Substance: NAPROXEN SODIUM
     Route: 065

REACTIONS (3)
  - Localised infection [Recovering/Resolving]
  - Constipation [Unknown]
  - Product dose omission issue [Unknown]
